FAERS Safety Report 23766696 (Version 1)
Quarter: 2024Q2

REPORT INFORMATION
  Report Type: Spontaneous
  Country: IT (occurrence: IT)
  Receive Date: 20240422
  Receipt Date: 20240422
  Transmission Date: 20240715
  Serious: Yes (Other)
  Sender: FDA-Public Use
  Company Number: IT-SANOFI-02015792

PATIENT
  Age: 42 Year
  Sex: Female

DRUGS (1)
  1. RIFADIN [Suspect]
     Active Substance: RIFAMPIN
     Indication: Tuberculosis
     Dosage: UNK

REACTIONS (5)
  - Dysentery [Unknown]
  - Myalgia [Unknown]
  - Abdominal pain [Unknown]
  - Headache [Unknown]
  - Fatigue [Unknown]
